FAERS Safety Report 6691368-4 (Version None)
Quarter: 2010Q2

REPORT INFORMATION
  Report Type: 
  Country: None (occurrence: None)
  Receive Date: 20100422
  Receipt Date: 20100414
  Transmission Date: 20101027
  Serious: Yes (Other)
  Sender: FDA-Public Use
  Company Number: GB-BAXTER-2010BH007168

PATIENT
  Sex: Female

DRUGS (9)
  1. GAMMAGARD LIQUID [Suspect]
     Indication: CHRONIC INFLAMMATORY DEMYELINATING POLYRADICULONEUROPATHY
     Route: 065
     Dates: start: 20100222, end: 20100222
  2. GAMMAGARD LIQUID [Suspect]
     Indication: OFF LABEL USE
     Route: 065
     Dates: start: 20100222, end: 20100222
  3. GAMMAGARD LIQUID [Suspect]
     Route: 065
     Dates: start: 20100222, end: 20100222
  4. GAMMAGARD LIQUID [Suspect]
     Route: 065
     Dates: start: 20100222, end: 20100222
  5. CALCICHEW D3 [Concomitant]
     Route: 048
  6. ALENDRONIC ACID [Concomitant]
     Route: 048
  7. PREDNISOLONE [Concomitant]
     Route: 048
  8. ACETAMINOPHEN AND CODEINE PHOSPHATE [Concomitant]
     Route: 048
  9. OMEPRAZOLE [Concomitant]
     Route: 048

REACTIONS (5)
  - HEADACHE [None]
  - MENINGITIS ASEPTIC [None]
  - MUSCULOSKELETAL STIFFNESS [None]
  - PHOTOPHOBIA [None]
  - VOMITING [None]
